FAERS Safety Report 14695136 (Version 1)
Quarter: 2018Q1

REPORT INFORMATION
  Report Type: Spontaneous
  Country: PH (occurrence: PH)
  Receive Date: 20180329
  Receipt Date: 20180329
  Transmission Date: 20180509
  Serious: Yes (Hospitalization)
  Sender: FDA-Public Use
  Company Number: PHHY2018PH048584

PATIENT
  Age: 24 Year
  Sex: Female

DRUGS (1)
  1. PREDNISONE. [Suspect]
     Active Substance: PREDNISONE
     Indication: MALIGNANT NEOPLASM OF LACRIMAL GLAND
     Dosage: 40 MG, UNK
     Route: 048

REACTIONS (7)
  - Hepatic failure [Unknown]
  - Depressed level of consciousness [Unknown]
  - Jaundice [Unknown]
  - Decreased appetite [Unknown]
  - Chromaturia [Unknown]
  - Pyrexia [Unknown]
  - Product use in unapproved indication [Unknown]
